FAERS Safety Report 11321788 (Version 3)
Quarter: 2015Q4

REPORT INFORMATION
  Report Type: Spontaneous
  Country: US (occurrence: US)
  Receive Date: 20150729
  Receipt Date: 20151209
  Transmission Date: 20160304
  Serious: Yes (Death, Hospitalization, Disabling, Other)
  Sender: FDA-Public Use
  Company Number: US-009507513-1507USA013276

PATIENT
  Sex: Male
  Weight: 106.58 kg

DRUGS (1)
  1. JANUVIA [Suspect]
     Active Substance: SITAGLIPTIN PHOSPHATE
     Indication: TYPE 2 DIABETES MELLITUS
     Dosage: 100 MG, QD
     Route: 048
     Dates: start: 20101019, end: 201209

REACTIONS (9)
  - Chest pain [Unknown]
  - Pancreatic carcinoma metastatic [Unknown]
  - Pancreatic cyst [Unknown]
  - Pancreatitis chronic [Not Recovered/Not Resolved]
  - Abdominal hernia [Unknown]
  - Death [Fatal]
  - Peripheral swelling [Unknown]
  - Synovial cyst [Unknown]
  - Neutropenia [Unknown]

NARRATIVE: CASE EVENT DATE: 20120907
